FAERS Safety Report 5780628-7 (Version None)
Quarter: 2008Q2

REPORT INFORMATION
  Report Type: 
  Country: None (occurrence: None)
  Receive Date: 20080620
  Receipt Date: 20080617
  Transmission Date: 20081010
  Serious: Yes (Other)
  Sender: FDA-Public Use
  Company Number: BR-ASTRAZENECA-2008UW12289

PATIENT
  Age: 81 Year
  Sex: Female

DRUGS (2)
  1. SEROQUEL [Suspect]
     Indication: ANXIETY
     Dates: end: 20080401
  2. NORTRIPTYLINE HCL [Concomitant]
     Indication: DEPRESSION
     Dates: end: 20080401

REACTIONS (2)
  - HEPATITIS [None]
  - PRURITUS [None]
